FAERS Safety Report 14250051 (Version 1)
Quarter: 2017Q4

REPORT INFORMATION
  Report Type: Spontaneous
  Country: US (occurrence: None)
  Receive Date: 20171205
  Receipt Date: 20171205
  Transmission Date: 20180321
  Serious: Yes (Other)
  Sender: FDA-Public Use
  Company Number: None

PATIENT
  Age: 60 Year
  Sex: Female

DRUGS (2)
  1. FOLI ACID [Concomitant]
  2. TASIGNA [Suspect]
     Active Substance: NILOTINIB
     Indication: LEUKAEMIA
     Dosage: 150MG EVERY 12 MONTHS ORALLY
     Route: 048
     Dates: start: 20171012

REACTIONS (2)
  - Breast cancer [None]
  - Musculoskeletal pain [None]

NARRATIVE: CASE EVENT DATE: 2017
